FAERS Safety Report 11553017 (Version 1)
Quarter: 2015Q3

REPORT INFORMATION
  Report Type: Spontaneous
  Country: US (occurrence: US)
  Receive Date: 20150925
  Receipt Date: 20150925
  Transmission Date: 20151125
  Serious: Yes (Life-Threatening, Hospitalization, Other)
  Sender: FDA-Public Use
  Company Number: US-ACTAVIS-2015-20446

PATIENT
  Age: 51 Year
  Sex: Male
  Weight: 100 kg

DRUGS (2)
  1. AMLODIPINE [Suspect]
     Active Substance: AMLODIPINE BESYLATE
     Indication: SUICIDE ATTEMPT
     Dosage: 200 MG, TOTAL (40 TABLETS OF 5MG)
     Route: 048
  2. METOPROLOL (WATSON LABORATORIES) [Suspect]
     Active Substance: METOPROLOL
     Indication: SUICIDE ATTEMPT
     Dosage: 1000 MG, TOTAL (40 TABLETS OF 25MG)
     Route: 048

REACTIONS (6)
  - Hypotension [Recovered/Resolved]
  - Intentional overdose [Recovered/Resolved]
  - Nodal arrhythmia [Recovered/Resolved]
  - Somnolence [Recovered/Resolved]
  - Suicide attempt [Recovered/Resolved]
  - Vomiting [Recovered/Resolved]
